FAERS Safety Report 8844524 (Version 1)
Quarter: 2012Q4

REPORT INFORMATION
  Report Type: Spontaneous
  Country: DK (occurrence: None)
  Receive Date: 20121012
  Receipt Date: 20121012
  Transmission Date: 20130627
  Serious: Yes (Hospitalization)
  Sender: FDA-Public Use
  Company Number: 2012MA012155

PATIENT
  Age: 41 Year
  Sex: Male

DRUGS (4)
  1. NAPROXEN DELAYED-RELEASE [Suspect]
     Indication: BACK PAIN (WITH RADIATION)
     Route: 048
     Dates: start: 20120911
  2. SIMVASTATIN [Concomitant]
  3. PROMETHAZINE [Concomitant]
  4. NAPROXEN [Concomitant]

REACTIONS (3)
  - Rash papular [None]
  - Gastrointestinal disorder [None]
  - Alanine aminotransferase increased [None]
